FAERS Safety Report 15566646 (Version 1)
Quarter: 2018Q4

REPORT INFORMATION
  Report Type: Spontaneous
  Country: US (occurrence: US)
  Receive Date: 20181030
  Receipt Date: 20181030
  Transmission Date: 20190205
  Serious: Yes (Other)
  Sender: FDA-Public Use
  Company Number: US-TEVA-2018-US-969273

PATIENT
  Age: 15 Year
  Sex: Female

DRUGS (2)
  1. ACETAZOLAMIDE. [Suspect]
     Active Substance: ACETAZOLAMIDE
     Dosage: IMMEDIATE RELEASE; ADMINISTERED FOUR TIMES DAILY
     Route: 048
  2. ACETAZOLAMIDE. [Suspect]
     Active Substance: ACETAZOLAMIDE
     Indication: IDIOPATHIC INTRACRANIAL HYPERTENSION
     Dosage: 2000 MILLIGRAM DAILY; EXTENDED RELEASE
     Route: 048

REACTIONS (1)
  - Type I hypersensitivity [Recovered/Resolved]
